FAERS Safety Report 8237816-X (Version None)
Quarter: 2012Q1

REPORT INFORMATION
  Report Type: 
  Country: None (occurrence: None)
  Receive Date: 20120327
  Receipt Date: 20120323
  Transmission Date: 20120608
  Serious: No
  Sender: FDA-Public Use
  Company Number: US-PFIZER INC-2012075871

PATIENT
  Age: 91 Year
  Sex: Female
  Weight: 46.259 kg

DRUGS (3)
  1. IBUPROFEN (ADVIL) [Suspect]
     Indication: ARTHRALGIA
     Dosage: UNK
     Route: 048
  2. IBUPROFEN (ADVIL) [Suspect]
     Dosage: UNK
     Route: 048
     Dates: start: 20120301
  3. BENICAR [Concomitant]
     Indication: BLOOD PRESSURE ABNORMAL
     Dosage: UNK

REACTIONS (2)
  - NIGHTMARE [None]
  - EMOTIONAL DISORDER [None]
